FAERS Safety Report 25170941 (Version 2)
Quarter: 2025Q2

REPORT INFORMATION
  Report Type: Spontaneous
  Country: JP (occurrence: JP)
  Receive Date: 20250408
  Receipt Date: 20250421
  Transmission Date: 20250716
  Serious: Yes (Other)
  Sender: JOHNSON AND JOHNSON
  Company Number: JP-JNJFOC-20250143185

PATIENT
  Age: 63 Year
  Sex: Female

DRUGS (7)
  1. RYBREVANT [Suspect]
     Active Substance: AMIVANTAMAB-VMJW
     Indication: Non-small cell lung cancer recurrent
     Route: 041
     Dates: start: 20250107, end: 20250107
  2. RYBREVANT [Suspect]
     Active Substance: AMIVANTAMAB-VMJW
     Route: 041
     Dates: start: 20250108, end: 20250108
  3. RYBREVANT [Suspect]
     Active Substance: AMIVANTAMAB-VMJW
     Route: 041
     Dates: start: 20250114, end: 20250114
  4. RYBREVANT [Suspect]
     Active Substance: AMIVANTAMAB-VMJW
     Route: 041
     Dates: start: 20250121, end: 20250121
  5. RYBREVANT [Suspect]
     Active Substance: AMIVANTAMAB-VMJW
     Route: 041
     Dates: start: 2025, end: 2025
  6. CARBOPLATIN [Concomitant]
     Active Substance: CARBOPLATIN
     Indication: Lung neoplasm malignant
     Dosage: AUC5MG
     Route: 041
     Dates: start: 20250107
  7. PEMETREXED [Concomitant]
     Active Substance: PEMETREXED
     Indication: Lung neoplasm malignant
     Route: 041
     Dates: start: 20250107

REACTIONS (5)
  - Non-small cell lung cancer recurrent [Unknown]
  - Blood pressure decreased [Recovered/Resolved]
  - Infusion related reaction [Unknown]
  - Feeling abnormal [Unknown]
  - Decreased appetite [Recovered/Resolved]

NARRATIVE: CASE EVENT DATE: 20250101
